FAERS Safety Report 16584451 (Version 2)
Quarter: 2019Q3

REPORT INFORMATION
  Report Type: Spontaneous
  Country: CN (occurrence: CN)
  Receive Date: 20190717
  Receipt Date: 20190725
  Transmission Date: 20191004
  Serious: Yes (Other)
  Sender: FDA-Public Use
  Company Number: CN-ROCHE-2356511

PATIENT
  Age: 68 Year
  Sex: Female

DRUGS (1)
  1. ACTILYSE [Suspect]
     Active Substance: ALTEPLASE
     Indication: CEREBRAL INFARCTION
     Route: 042

REACTIONS (4)
  - Blood immunoglobulin E increased [Unknown]
  - Multiple organ dysfunction syndrome [Unknown]
  - Complement factor C3 increased [Unknown]
  - Tumour marker increased [Unknown]
